FAERS Safety Report 6287459 (Version 7)
Quarter: 2013Q2

REPORT INFORMATION
  Report Type: Spontaneous
  Country: FR (occurrence: None)
  Receive Date: 20070327
  Receipt Date: 20130424
  Transmission Date: 20140414
  Serious: Yes (Hospitalization, Other)
  Sender: FDA-Public Use
  Company Number: JPI-P-000899

PATIENT
  Age: 59 Year
  Sex: Male

DRUGS (9)
  1. XYREM [Suspect]
     Indication: CATAPLEXY
     Dosage: 4.5 GM (2.25 GM, 2 IN 1 D)
     Route: 048
     Dates: start: 20061220, end: 20070208
  2. LEVETIRACETAM [Suspect]
     Indication: PRODUCT USED FOR UNKNOWN INDICATION
  3. MODAFINIL [Concomitant]
  4. CLOMIPRAMINE [Concomitant]
  5. METFORMIN EMBONATE [Concomitant]
  6. TRIMETAZIDINE HYDROCHLORIDE [Concomitant]
  7. FENOFIBRATE [Concomitant]
  8. CIPROFIBRATE [Concomitant]
  9. ESOMEPRAZOLE MAGNESIUM [Concomitant]

REACTIONS (12)
  - Irritability [None]
  - Aggression [None]
  - Amnesia [None]
  - Pleurisy [None]
  - Somnambulism [None]
  - Disorientation [None]
  - Wound [None]
  - Disorientation [None]
  - Social problem [None]
  - Fall [None]
  - Epilepsy [None]
  - Family stress [None]
